FAERS Safety Report 10533814 (Version 5)
Quarter: 2019Q4

REPORT INFORMATION
  Report Type: Spontaneous
  Country: GB (occurrence: GB)
  Receive Date: 20141022
  Receipt Date: 20191010
  Transmission Date: 20200122
  Serious: Yes (Life-Threatening, Hospitalization, Congenital Anomaly, Other)
  Sender: FDA-Public Use
  Company Number: GB-JNJFOC-20141011178

PATIENT
  Age: 12 Month
  Sex: Female
  Weight: 2.27 kg

DRUGS (2)
  1. ACETAMINOPHEN AND CODEINE [Suspect]
     Active Substance: ACETAMINOPHEN\CODEINE PHOSPHATE
     Indication: PELVIC PAIN
     Dosage: 6 MONTHS
     Route: 064
  2. PARACETAMOL [Suspect]
     Active Substance: ACETAMINOPHEN
     Indication: PELVIC PAIN
     Dosage: UP TO 4 DOSES
     Route: 064

REACTIONS (12)
  - Developmental delay [Not Recovered/Not Resolved]
  - Dependence [Recovered/Resolved]
  - Tremor [Unknown]
  - Premature baby [Unknown]
  - Hepatic function abnormal [Unknown]
  - Aphasia [Unknown]
  - Malaise [Unknown]
  - Jaundice [Recovered/Resolved]
  - Foetal arrhythmia [Recovered/Resolved]
  - Foetal exposure during pregnancy [Recovered/Resolved with Sequelae]
  - Hepatotoxicity [Recovered/Resolved]
  - Gait inability [Unknown]
